FAERS Safety Report 11700981 (Version 1)
Quarter: 2015Q4

REPORT INFORMATION
  Report Type: Spontaneous
  Country: BR (occurrence: BR)
  Receive Date: 20151105
  Receipt Date: 20151105
  Transmission Date: 20160304
  Serious: Yes (Other)
  Sender: FDA-Public Use
  Company Number: BR-JNJFOC-20151100173

PATIENT

DRUGS (1)
  1. CONCERTA [Suspect]
     Active Substance: METHYLPHENIDATE HYDROCHLORIDE
     Indication: EDUCATIONAL PROBLEM
     Route: 048

REACTIONS (9)
  - Hyperhidrosis [Unknown]
  - Crying [Unknown]
  - Off label use [Unknown]
  - Decreased appetite [Unknown]
  - Substance abuser [Unknown]
  - Tachycardia [Unknown]
  - Incorrect dose administered [Unknown]
  - Insomnia [Unknown]
  - Mental disorder [Unknown]
